FAERS Safety Report 10589635 (Version 1)
Quarter: 2014Q4

REPORT INFORMATION
  Report Type: Spontaneous
  Country: US (occurrence: US)
  Receive Date: 20141118
  Receipt Date: 20141118
  Transmission Date: 20150529
  Serious: Yes (Hospitalization)
  Sender: FDA-Public Use
  Company Number: US-AMGEN-USASP2014088827

PATIENT
  Age: 49 Year

DRUGS (6)
  1. NEULASTA [Suspect]
     Active Substance: PEGFILGRASTIM
     Indication: BREAST CANCER
     Dosage: 5 MCG/KG, ON DAYS 2-11 OR PEGFILGRASTIM 6 MG ON DAYS 2 EVERY 14 DAYS CYCLE FOR CYCLES 1-4
     Route: 058
     Dates: start: 20080531
  2. DOXORUBICIN [Suspect]
     Active Substance: DOXORUBICIN
     Indication: BREAST CANCER
     Dosage: 60 MG/M2, 1 IN 14 D, GIVEN THROUGH INTRAVENOUS PUSH ON DAY 1 EVERY 14 DAYS CYCLE FOR CYCLES 1-4
     Route: 042
     Dates: start: 20080530
  3. PACLITAXEL. [Suspect]
     Active Substance: PACLITAXEL
     Indication: BREAST CANCER
     Dosage: 80 MG/M2, 3 IN 3 WK, GIVEN OVER 1 HOUR ON DAYS 1, 8 AND 15 EVERY 21 DAYS CYCLE FOR CYCLES 5-8
     Route: 042
  4. BEVACIZUMAB [Suspect]
     Active Substance: BEVACIZUMAB
     Indication: BREAST CANCER
     Dosage: GIVEN OVER 30-90 MIN ON DAY 1 EVERY 14 DAYS CYCLE FOR CYCLES 1-4, 1 IN 14 D
     Route: 042
     Dates: start: 20080530
  5. BEVACIZUMAB [Suspect]
     Active Substance: BEVACIZUMAB
     Dosage: GIVEN OVER 30-90 MIN ON DAY 1 EVERY 21 DAYS CYCLE FOR CYCLES 5-8, 1 IN 21 D
     Route: 042
  6. CYCLOPHOSPHAMIDE. [Concomitant]
     Active Substance: CYCLOPHOSPHAMIDE
     Indication: BREAST CANCER
     Dosage: 600 MG/M2, 1 IN 14 D, GIVEN OVER 20-30 MIN ON DAY 1 EVERY 14 DAYS CYCLE FOR CYCLES 1-4
     Route: 042
     Dates: start: 20080530

REACTIONS (6)
  - Dyspnoea [Recovered/Resolved]
  - Hypertension [Unknown]
  - Thrombosis [Unknown]
  - Chest pain [Unknown]
  - Back pain [Recovered/Resolved]
  - Non-cardiac chest pain [Unknown]

NARRATIVE: CASE EVENT DATE: 20080905
